FAERS Safety Report 17053857 (Version 1)
Quarter: 2019Q4

REPORT INFORMATION
  Report Type: Spontaneous
  Country: JP (occurrence: JP)
  Receive Date: 20191120
  Receipt Date: 20191120
  Transmission Date: 20200122
  Serious: Yes (Other)
  Sender: FDA-Public Use
  Company Number: JP-BAYER-2019-204547

PATIENT

DRUGS (1)
  1. STIVARGA [Suspect]
     Active Substance: REGORAFENIB
     Indication: GASTROINTESTINAL STROMAL TUMOUR
     Dosage: UNK
     Route: 048
     Dates: end: 20190805

REACTIONS (1)
  - Gastrointestinal stromal tumour [Not Recovered/Not Resolved]

NARRATIVE: CASE EVENT DATE: 20190805
